FAERS Safety Report 4630482-1 (Version None)
Quarter: 2005Q2

REPORT INFORMATION
  Report Type: 
  Country: None (occurrence: None)
  Receive Date: 20050408
  Receipt Date: 20050329
  Transmission Date: 20051028
  Serious: Yes (Death, Life-Threatening, Hospitalization)
  Sender: FDA-Public Use
  Company Number: JP-JNJFOC-20041205245

PATIENT
  Age: 60 Year
  Sex: Male

DRUGS (9)
  1. DUROTEP [Suspect]
     Route: 062
  2. DUROTEP [Suspect]
     Route: 062
  3. DUROTEP [Suspect]
     Route: 062
  4. DUROTEP [Suspect]
     Indication: CANCER PAIN
     Route: 062
  5. CLONAZEPAM [Concomitant]
     Indication: CANCER PAIN
     Route: 049
  6. DICLOFENAC SODIUM [Concomitant]
     Indication: CANCER PAIN
     Dosage: 50 MG/DAY, AS NEEDED
     Route: 054
  7. FAMOTIDINE [Concomitant]
     Route: 049
  8. MORPHINE HCL ELIXIR [Concomitant]
     Dosage: 10 MG, AS NEEDED
     Route: 049
  9. MORPHINE [Concomitant]
     Route: 042

REACTIONS (7)
  - APNOEA [None]
  - DEPRESSED LEVEL OF CONSCIOUSNESS [None]
  - GASTRIC CANCER [None]
  - LOSS OF CONSCIOUSNESS [None]
  - MALIGNANT NEOPLASM PROGRESSION [None]
  - RESPIRATORY DEPRESSION [None]
  - SOMNOLENCE [None]
